FAERS Safety Report 8769817 (Version 2)
Quarter: 2012Q4

REPORT INFORMATION
  Report Type: Report from Study
  Country: FR (occurrence: FR)
  Receive Date: 20120905
  Receipt Date: 20120905
  Transmission Date: 20130627
  Serious: Yes (Death, Life-Threatening, Hospitalization, Other)
  Sender: FDA-Public Use
  Company Number: FR-INCYTE CORPORATION-2011IN000159

PATIENT
  Age: 69 Year
  Sex: Male
  Weight: 62.5 kg

DRUGS (11)
  1. INC424 [Suspect]
     Indication: MYELOFIBROSIS
     Dosage: 15 mg, bid
     Route: 048
     Dates: start: 20110125, end: 20110509
  2. INC424 [Suspect]
     Dosage: 10 mg, bid
     Route: 048
     Dates: start: 20110510, end: 20110726
  3. REVLIMID [Suspect]
     Indication: MYELOFIBROSIS
     Dosage: UNK
     Dates: start: 20100212, end: 201006
  4. SPASFON [Concomitant]
     Dosage: UNK
     Dates: end: 20110729
  5. PARACETAMOL [Concomitant]
  6. NEXIUM [Concomitant]
  7. OROCAL D(3) [Concomitant]
     Dosage: UNK
     Dates: end: 20110729
  8. ASPEGIC [Concomitant]
     Dosage: UNK
     Dates: end: 20110628
  9. ALDACTONE [Concomitant]
  10. SANDOSTATINE [Concomitant]
     Dosage: UNK
     Dates: start: 20110726
  11. PROTON PUMP INHIBITORS [Concomitant]
     Dosage: UNK
     Dates: start: 20110726

REACTIONS (3)
  - Colon cancer metastatic [Fatal]
  - Hepatic cirrhosis [Fatal]
  - Metastases to liver [Fatal]
